FAERS Safety Report 21506731 (Version 1)
Quarter: 2022Q4

REPORT INFORMATION
  Report Type: Spontaneous
  Country: AT (occurrence: AT)
  Receive Date: 20221026
  Receipt Date: 20221026
  Transmission Date: 20230113
  Serious: Yes (Other)
  Sender: FDA-Public Use
  Company Number: AT-NOVARTISPH-NVSC2022AT237481

PATIENT
  Sex: Female

DRUGS (1)
  1. PIQRAY [Suspect]
     Active Substance: ALPELISIB
     Indication: Product used for unknown indication
     Dosage: UNK
     Route: 065
     Dates: start: 20220924, end: 20221014

REACTIONS (4)
  - Disease progression [Unknown]
  - Metastases to liver [Unknown]
  - Blood glucose increased [Unknown]
  - Panic reaction [Unknown]

NARRATIVE: CASE EVENT DATE: 20221014
